FAERS Safety Report 14973044 (Version 2)
Quarter: 2018Q2

REPORT INFORMATION
  Report Type: Report from Study
  Country: US (occurrence: US)
  Receive Date: 20180605
  Receipt Date: 20180618
  Transmission Date: 20180711
  Serious: No
  Sender: FDA-Public Use
  Company Number: PHEH2018US021832

PATIENT
  Age: 24 Year
  Sex: Female

DRUGS (2)
  1. BUSPAR [Concomitant]
     Active Substance: BUSPIRONE HYDROCHLORIDE
     Indication: PRODUCT USED FOR UNKNOWN INDICATION
     Route: 065
  2. GILENYA [Suspect]
     Active Substance: FINGOLIMOD HYDROCHLORIDE
     Indication: MULTIPLE SCLEROSIS
     Dosage: 0.5 MG, QD
     Route: 048
     Dates: start: 20180517

REACTIONS (10)
  - Anxiety [Unknown]
  - Fatigue [Unknown]
  - Back pain [Unknown]
  - Nausea [Recovered/Resolved]
  - Dizziness [Recovered/Resolved]
  - Chest pain [Unknown]
  - Panic attack [Unknown]
  - Headache [Unknown]
  - Abdominal pain [Unknown]
  - Vertigo [Unknown]

NARRATIVE: CASE EVENT DATE: 20180517
